FAERS Safety Report 10882936 (Version 1)
Quarter: 2015Q1

REPORT INFORMATION
  Report Type: Spontaneous
  Country: US (occurrence: US)
  Receive Date: 20150303
  Receipt Date: 20150303
  Transmission Date: 20150721
  Serious: No
  Sender: FDA-Public Use
  Company Number: US-PFIZER INC-2015073720

PATIENT
  Age: 57 Year
  Sex: Female
  Weight: 65 kg

DRUGS (2)
  1. ADVIL [Suspect]
     Active Substance: IBUPROFEN
     Indication: INTERVERTEBRAL DISC DEGENERATION
     Dosage: 400 MG, AS NEEDED
     Route: 048
     Dates: start: 20150221, end: 20150224
  2. ATIVAN [Concomitant]
     Active Substance: LORAZEPAM
     Indication: TACHYCARDIA
     Dosage: 0.5 MG, AS NEEDED
     Route: 048

REACTIONS (6)
  - Feeling cold [Recovering/Resolving]
  - Burning sensation [Not Recovered/Not Resolved]
  - Body temperature decreased [Recovering/Resolving]
  - Weight bearing difficulty [Not Recovered/Not Resolved]
  - Drug hypersensitivity [Unknown]
  - Musculoskeletal discomfort [Not Recovered/Not Resolved]

NARRATIVE: CASE EVENT DATE: 201502
